FAERS Safety Report 13906119 (Version 1)
Quarter: 2017Q3

REPORT INFORMATION
  Report Type: Spontaneous
  Country: JP (occurrence: JP)
  Receive Date: 20170825
  Receipt Date: 20170825
  Transmission Date: 20171127
  Serious: Yes (Other)
  Sender: FDA-Public Use
  Company Number: JP-PFIZER INC-2017362074

PATIENT
  Sex: Male

DRUGS (1)
  1. LYRICA [Suspect]
     Active Substance: PREGABALIN
     Dosage: 8 DF, UNK
     Route: 048

REACTIONS (4)
  - Ophthalmological examination abnormal [Unknown]
  - Optic nerve disorder [Unknown]
  - Visual acuity reduced [Unknown]
  - Visual field defect [Unknown]
